FAERS Safety Report 23822919 (Version 2)
Quarter: 2024Q2

REPORT INFORMATION
  Report Type: Spontaneous
  Country: CN (occurrence: CN)
  Receive Date: 20240506
  Receipt Date: 20240507
  Transmission Date: 20240716
  Serious: Yes (Other)
  Sender: FDA-Public Use
  Company Number: CN-009507513-2405CHN001287

PATIENT
  Age: 72 Year
  Sex: Male
  Weight: 52 kg

DRUGS (12)
  1. KEYTRUDA [Suspect]
     Active Substance: PEMBROLIZUMAB
     Indication: Squamous cell carcinoma of the hypopharynx
     Dosage: 4 VIAL, Q3W
     Route: 041
     Dates: start: 20231019, end: 20231019
  2. KEYTRUDA [Suspect]
     Active Substance: PEMBROLIZUMAB
     Dosage: 4 VIAL, Q3W
     Route: 041
     Dates: start: 20231109, end: 20231109
  3. KEYTRUDA [Suspect]
     Active Substance: PEMBROLIZUMAB
     Dosage: 4 VIAL, Q3W
     Route: 041
     Dates: start: 20231130, end: 20231130
  4. KEYTRUDA [Suspect]
     Active Substance: PEMBROLIZUMAB
     Dosage: 4 VIAL, Q3W
     Route: 041
     Dates: start: 20231221, end: 20231221
  5. PACLITAXEL [Suspect]
     Active Substance: PACLITAXEL
     Indication: Squamous cell carcinoma of the hypopharynx
     Dosage: 221 MG, Q3W
     Route: 041
     Dates: start: 20231019, end: 20231019
  6. PACLITAXEL [Suspect]
     Active Substance: PACLITAXEL
     Dosage: 221 MG, Q3W
     Route: 041
     Dates: start: 20231109, end: 20231109
  7. PACLITAXEL [Suspect]
     Active Substance: PACLITAXEL
     Dosage: 221 MG, Q3W
     Route: 041
     Dates: start: 20231130, end: 20231130
  8. PACLITAXEL [Suspect]
     Active Substance: PACLITAXEL
     Dosage: 221 MG, Q3W
     Route: 041
     Dates: start: 20231221, end: 20231221
  9. CISPLATIN [Suspect]
     Active Substance: CISPLATIN
     Indication: Squamous cell carcinoma of the hypopharynx
     Dosage: 122 MG, Q3W
     Route: 041
     Dates: start: 20231019, end: 20231019
  10. CISPLATIN [Suspect]
     Active Substance: CISPLATIN
     Dosage: 122 MG, Q3W
     Route: 041
     Dates: start: 20231109, end: 20231109
  11. CISPLATIN [Suspect]
     Active Substance: CISPLATIN
     Dosage: 122 MG, Q3W
     Route: 041
     Dates: start: 20231130, end: 20231130
  12. CISPLATIN [Suspect]
     Active Substance: CISPLATIN
     Dosage: 122 MG, Q3W
     Route: 041
     Dates: start: 20231221, end: 20231221

REACTIONS (6)
  - Encephalitis [Unknown]
  - Delirium [Unknown]
  - Mental disorder [Unknown]
  - Listless [Unknown]
  - Dysphoria [Unknown]
  - Product use issue [Unknown]

NARRATIVE: CASE EVENT DATE: 20231019
